FAERS Safety Report 6649102-X (Version None)
Quarter: 2010Q1

REPORT INFORMATION
  Report Type: 
  Country: None (occurrence: None)
  Receive Date: 20100324
  Receipt Date: 20100311
  Transmission Date: 20100710
  Serious: Yes (Life-Threatening)
  Sender: FDA-Public Use
  Company Number: GB-JNJFOC-20100107378

PATIENT
  Sex: Female

DRUGS (5)
  1. CAELYX [Suspect]
     Indication: DESMOID TUMOUR
     Route: 042
  2. PIRITON [Suspect]
     Indication: ANAPHYLACTIC SHOCK
     Route: 042
  3. ONDANSETRON [Concomitant]
     Indication: DRUG USE FOR UNKNOWN INDICATION
     Route: 048
  4. TRAMADOL [Concomitant]
     Indication: DRUG USE FOR UNKNOWN INDICATION
     Route: 048
  5. HYDROCORTISONE [Concomitant]
     Indication: ANAPHYLACTIC SHOCK

REACTIONS (7)
  - ABDOMINAL PAIN LOWER [None]
  - ANAPHYLACTIC SHOCK [None]
  - BLADDER SPASM [None]
  - INFUSION RELATED REACTION [None]
  - JOINT LOCK [None]
  - OFF LABEL USE [None]
  - TRISMUS [None]
